FAERS Safety Report 7651410-0 (Version None)
Quarter: 2011Q3

REPORT INFORMATION
  Report Type: 
  Country: None (occurrence: None)
  Receive Date: 20110802
  Receipt Date: 20110722
  Transmission Date: 20111222
  Serious: Yes (Hospitalization, Disabling, Other)
  Sender: FDA-Public Use
  Company Number: PHHY2009CA37773

PATIENT
  Sex: Male

DRUGS (5)
  1. VALPROATE SODIUM [Concomitant]
     Dosage: 1750 MG, UNK
  2. CLONAZEPAM [Concomitant]
     Dosage: 2 MG, TID
  3. CLOZAPINE [Suspect]
     Indication: SCHIZOPHRENIA
     Route: 048
     Dates: start: 20090724, end: 20090901
  4. ZYPREXA [Concomitant]
     Dosage: 15 MG
  5. LOXAPINE HCL [Concomitant]
     Dosage: 25 MG, QID

REACTIONS (7)
  - MYOCARDITIS [None]
  - HEART RATE INCREASED [None]
  - EOSINOPHIL COUNT INCREASED [None]
  - EOSINOPHILIC MYOCARDITIS [None]
  - EOSINOPHILIA [None]
  - SUICIDAL IDEATION [None]
  - PSYCHOTIC DISORDER [None]
